FAERS Safety Report 8600462-X (Version None)
Quarter: 2012Q3

REPORT INFORMATION
  Report Type: 
  Country: None (occurrence: None)
  Receive Date: 20120817
  Receipt Date: 20120813
  Transmission Date: 20120928
  Serious: Yes (Death, Hospitalization)
  Sender: FDA-Public Use
  Company Number: US-ELI_LILLY_AND_COMPANY-US201207003648

PATIENT
  Sex: Female

DRUGS (9)
  1. EFFEXOR [Concomitant]
  2. NEXIUM [Concomitant]
  3. PERCOCET [Concomitant]
  4. LORTAB [Concomitant]
     Dosage: 1 DF, QID
  5. FIORICET [Concomitant]
  6. SEASONIQUE [Concomitant]
  7. ALCOHOL                            /00002101/ [Concomitant]
     Dosage: UNK
  8. VALIUM [Concomitant]
  9. CYMBALTA [Suspect]
     Indication: FIBROMYALGIA
     Dosage: 60 MG, QD
     Dates: start: 20120425

REACTIONS (8)
  - PHARYNGITIS [None]
  - FEELINGS OF WORTHLESSNESS [None]
  - ALCOHOL INTERACTION [None]
  - PAIN [None]
  - LOSS OF CONSCIOUSNESS [None]
  - ALCOHOL POISONING [None]
  - HEPATIC FAILURE [None]
  - DISSOCIATION [None]
